FAERS Safety Report 7411544-2 (Version None)
Quarter: 2011Q2

REPORT INFORMATION
  Report Type: 
  Country: None (occurrence: None)
  Receive Date: 20110413
  Receipt Date: 20100820
  Transmission Date: 20111010
  Serious: Yes (Hospitalization)
  Sender: FDA-Public Use
  Company Number: US-BRISTOL-MYERS SQUIBB COMPANY-15249931

PATIENT
  Age: 58 Year
  Sex: Female
  Weight: 67 kg

DRUGS (4)
  1. SYNTHROID [Concomitant]
  2. SIMVASTATIN [Concomitant]
  3. IRINOTECAN [Concomitant]
  4. ERBITUX [Suspect]
     Indication: COLON CANCER
     Dates: start: 20100810

REACTIONS (1)
  - DIARRHOEA [None]
